FAERS Safety Report 24190470 (Version 1)
Quarter: 2024Q3

REPORT INFORMATION
  Report Type: Spontaneous
  Country: US (occurrence: US)
  Receive Date: 20240808
  Receipt Date: 20240808
  Transmission Date: 20241017
  Serious: No
  Sender: TARO
  Company Number: US-TARO PHARMACEUTICALS USA INC.-2024TAR00815

PATIENT
  Age: 16 Year
  Sex: Male

DRUGS (2)
  1. ADAPALENE [Suspect]
     Active Substance: ADAPALENE
     Indication: Product used for unknown indication
     Dosage: UNK, DAIL, JUST FLAP ON MY HAND
     Route: 065
     Dates: start: 202406, end: 20240612
  2. VITAMINS [Concomitant]
     Active Substance: VITAMINS
     Indication: Product used for unknown indication
     Dosage: UNK
     Route: 065

REACTIONS (3)
  - Erythema [Recovering/Resolving]
  - Dry skin [Recovering/Resolving]
  - Burning sensation [Recovering/Resolving]
